FAERS Safety Report 8265480-2 (Version None)
Quarter: 2012Q2

REPORT INFORMATION
  Report Type: 
  Country: None (occurrence: None)
  Receive Date: 20120406
  Receipt Date: 20120403
  Transmission Date: 20120825
  Serious: Yes (Other)
  Sender: FDA-Public Use
  Company Number: US-PFIZER INC-2012003493

PATIENT
  Sex: Female

DRUGS (9)
  1. PREDNISONE [Concomitant]
     Indication: STEROID THERAPY
     Dosage: UNK
     Dates: start: 20050101, end: 20100601
  2. DICYCLOMINE [Concomitant]
     Indication: IRRITABLE BOWEL SYNDROME
     Dosage: UNK
     Dates: start: 20050101, end: 20100601
  3. CHANTIX [Suspect]
     Indication: SMOKING CESSATION THERAPY
     Dosage: 0.5 MG, UNK
     Dates: start: 20070301, end: 20070501
  4. XOLAIR [Concomitant]
     Indication: ASTHMA
     Dosage: UNK
     Dates: start: 20050101
  5. AZITHROMYCIN [Concomitant]
     Indication: ANTIBIOTIC THERAPY
     Dosage: UNK
     Dates: start: 20050101, end: 20100601
  6. PERCOCET [Concomitant]
     Indication: PAIN
     Dosage: UNK
     Dates: start: 20050101, end: 20110101
  7. TYLENOL W/ CODEINE [Concomitant]
     Indication: PAIN
     Dosage: UNK
     Dates: start: 20050101, end: 20110101
  8. TIAZAC [Concomitant]
     Indication: BLOOD PRESSURE
     Dosage: UNK
     Dates: start: 20050101
  9. TIAZAC [Concomitant]
     Indication: CHEST PAIN

REACTIONS (10)
  - HALLUCINATION [None]
  - MENTAL DISORDER [None]
  - PANIC ATTACK [None]
  - DEPRESSION [None]
  - EMOTIONAL DISTRESS [None]
  - LOSS OF CONSCIOUSNESS [None]
  - DELUSION [None]
  - IMPAIRED DRIVING ABILITY [None]
  - ANXIETY [None]
  - PARANOIA [None]
